FAERS Safety Report 12653460 (Version 1)
Quarter: 2016Q3

REPORT INFORMATION
  Report Type: Spontaneous
  Country: BR (occurrence: BR)
  Receive Date: 20160815
  Receipt Date: 20160815
  Transmission Date: 20161109
  Serious: Yes (Other)
  Sender: FDA-Public Use
  Company Number: BR-009507513-1608BRA006738

PATIENT
  Age: 28 Year
  Sex: Female
  Weight: 90 kg

DRUGS (2)
  1. NASONEX [Suspect]
     Active Substance: MOMETASONE FUROATE
     Indication: RHINITIS ALLERGIC
     Dosage: ONE PUFF IN EACH NOSTRIL ONCE A DAY DURING CRISES
     Route: 045
     Dates: start: 2006, end: 2014
  2. NASONEX [Suspect]
     Active Substance: MOMETASONE FUROATE
     Dosage: ONE PUFF IN EACH NOSTRIL ONCE A DAY, DAILY
     Route: 045
     Dates: start: 2014

REACTIONS (5)
  - Underdose [Unknown]
  - Deafness [Not Recovered/Not Resolved]
  - Product quality issue [Unknown]
  - Poor quality drug administered [Unknown]
  - Visual impairment [Not Recovered/Not Resolved]

NARRATIVE: CASE EVENT DATE: 2006
